FAERS Safety Report 12804572 (Version 1)
Quarter: 2016Q4

REPORT INFORMATION
  Report Type: Spontaneous
  Country: None (occurrence: US)
  Receive Date: 20161003
  Receipt Date: 20161003
  Transmission Date: 20170207
  Serious: No
  Sender: FDA-Public Use
  Company Number: US-BION-20160129

PATIENT
  Sex: Female

DRUGS (1)
  1. LOPRAMIDE HCL CAPSULES [Suspect]
     Active Substance: LOPERAMIDE HYDROCHLORIDE
     Indication: DIARRHOEA
     Route: 048
     Dates: start: 20160425, end: 20160501

REACTIONS (5)
  - Dysgeusia [Recovered/Resolved]
  - Foreign body [Recovered/Resolved]
  - Malaise [None]
  - Product difficult to swallow [Recovered/Resolved]
  - Throat irritation [Recovered/Resolved]
